FAERS Safety Report 20962963 (Version 1)
Quarter: 2022Q2

REPORT INFORMATION
  Report Type: Report from Study
  Country: US (occurrence: US)
  Receive Date: 20220615
  Receipt Date: 20220615
  Transmission Date: 20220721
  Serious: No
  Sender: FDA-Public Use
  Company Number: US-BIOVITRUM-2022US07320

PATIENT
  Age: 42 Year
  Sex: Female

DRUGS (3)
  1. KINERET [Suspect]
     Active Substance: ANAKINRA
     Indication: Autoinflammatory disease
     Dosage: 100MG/0.67ML
     Route: 058
     Dates: start: 20220516
  2. KINERET [Suspect]
     Active Substance: ANAKINRA
     Dosage: 100MG/0.67ML
     Route: 058
     Dates: start: 20220517
  3. KINERET [Suspect]
     Active Substance: ANAKINRA
     Route: 058
     Dates: start: 20220514

REACTIONS (9)
  - Oropharyngeal pain [Unknown]
  - Urticaria [Unknown]
  - Pyrexia [Unknown]
  - Injection site erythema [Unknown]
  - Injection site pain [Unknown]
  - Injection site pruritus [Unknown]
  - Injection site swelling [Unknown]
  - Injection site urticaria [Unknown]
  - Off label use [Not Recovered/Not Resolved]

NARRATIVE: CASE EVENT DATE: 20220514
